FAERS Safety Report 24795390 (Version 1)
Quarter: 2024Q4

REPORT INFORMATION
  Report Type: Spontaneous
  Country: US (occurrence: US)
  Receive Date: 20241231
  Receipt Date: 20241231
  Transmission Date: 20250114
  Serious: Yes (Other)
  Sender: NOVARTIS
  Company Number: US-002147023-NVSC2024US246004

PATIENT

DRUGS (2)
  1. KESIMPTA [Suspect]
     Active Substance: OFATUMUMAB
     Indication: Product used for unknown indication
     Dosage: UNK
     Route: 065
  2. PAXLOVID [Suspect]
     Active Substance: NIRMATRELVIR\RITONAVIR
     Indication: Cough
     Dosage: UNK
     Route: 065

REACTIONS (6)
  - Deafness [Unknown]
  - COVID-19 [Unknown]
  - Ageusia [Unknown]
  - Anosmia [Unknown]
  - Tinnitus [Unknown]
  - Thinking abnormal [Unknown]
